FAERS Safety Report 6891367-3 (Version None)
Quarter: 2010Q3

REPORT INFORMATION
  Report Type: 
  Country: None (occurrence: None)
  Receive Date: 20100731
  Receipt Date: 20060817
  Transmission Date: 20110219
  Serious: No
  Sender: FDA-Public Use
  Company Number: US-PFIZER INC-2006100221

PATIENT
  Sex: Female
  Weight: 74.84 kg

DRUGS (4)
  1. DEPO-MEDROL [Suspect]
     Indication: SINUS DISORDER
     Route: 050
     Dates: start: 20060807
  2. NEURONTIN [Concomitant]
     Route: 065
  3. ACETAMINOPHEN [Concomitant]
     Route: 065
  4. ALL OTHER THERAPEUTIC PRODUCTS [Concomitant]
     Route: 065

REACTIONS (1)
  - INSOMNIA [None]
